FAERS Safety Report 7247420-8 (Version None)
Quarter: 2011Q1

REPORT INFORMATION
  Report Type: 
  Country: None (occurrence: None)
  Receive Date: 20110127
  Receipt Date: 20110118
  Transmission Date: 20110831
  Serious: Yes (Hospitalization, Other)
  Sender: FDA-Public Use
  Company Number: PHEH2009US03889

PATIENT
  Sex: Male

DRUGS (38)
  1. ZOMETA [Suspect]
  2. MAGNESIUM [Concomitant]
  3. BACTRIM [Concomitant]
  4. AREDIA [Suspect]
  5. CADUET [Concomitant]
  6. LORAZEPAM [Concomitant]
  7. MORPHINE SULFATE [Concomitant]
  8. TACROLIMUS [Concomitant]
  9. ONDANSETRON [Concomitant]
  10. PANTOPRAZOLE [Concomitant]
  11. PREDNISONE [Concomitant]
  12. LANTUS [Concomitant]
  13. REGLAN [Concomitant]
  14. ANTIVERT ^PFIZER^ [Concomitant]
  15. SULFAMETHOXAZOLE AND TRIMETHOPRIM [Concomitant]
  16. FENTANYL [Concomitant]
  17. ENTOCORT EC [Concomitant]
  18. IMODIUM MULTI-SYMPTOM RELIEF [Concomitant]
  19. TRAZODONE [Concomitant]
  20. HYDROMORPHONE [Concomitant]
  21. AVALIDE [Concomitant]
  22. COREG [Concomitant]
  23. CYMBALTA [Concomitant]
  24. VALIUM [Concomitant]
  25. PROTONIX [Concomitant]
  26. MYCOPHENOLIC ACID [Concomitant]
  27. AMBIEN [Concomitant]
  28. NALOXONE [Concomitant]
  29. TEMAZEPAM [Concomitant]
  30. VALCYTE [Concomitant]
  31. BENAZEPRIL HYDROCHLORIDE [Concomitant]
  32. VALTREX [Concomitant]
  33. ENTOCORT EC [Concomitant]
  34. METOCLOPRAMIDE [Concomitant]
  35. VALACICLOVIR [Concomitant]
  36. FLUCONAZOLE [Concomitant]
  37. PIPERACILLIN [Concomitant]
  38. NOVOLOG [Concomitant]

REACTIONS (51)
  - OSTEONECROSIS OF JAW [None]
  - CANDIDIASIS [None]
  - PNEUMONIA [None]
  - HYPERTENSION [None]
  - BLOOD SODIUM DECREASED [None]
  - GASTRIC POLYPS [None]
  - GASTRITIS [None]
  - OSTEONECROSIS [None]
  - CYTOMEGALOVIRUS INFECTION [None]
  - RASH [None]
  - NEUROPATHY PERIPHERAL [None]
  - LEFT VENTRICULAR HYPERTROPHY [None]
  - PAIN [None]
  - HYPERLIPIDAEMIA [None]
  - GASTROOESOPHAGEAL REFLUX DISEASE [None]
  - CARDIOMYOPATHY [None]
  - DUODENITIS [None]
  - ANXIETY [None]
  - DIABETES MELLITUS [None]
  - THROMBOSIS [None]
  - SLEEP APNOEA SYNDROME [None]
  - EXTRASYSTOLES [None]
  - INTERVERTEBRAL DISC DEGENERATION [None]
  - BONE DISORDER [None]
  - METASTASES TO BONE MARROW [None]
  - OSTEOPOROSIS [None]
  - INFLAMMATION [None]
  - PYREXIA [None]
  - DYSPHAGIA [None]
  - OSTEOLYSIS [None]
  - DECREASED INTEREST [None]
  - IMPAIRED HEALING [None]
  - GRAFT VERSUS HOST DISEASE [None]
  - BLOOD MAGNESIUM DECREASED [None]
  - IMPAIRED GASTRIC EMPTYING [None]
  - HYPOXIA [None]
  - NEOPLASM MALIGNANT [None]
  - DIARRHOEA [None]
  - DEHYDRATION [None]
  - EJECTION FRACTION [None]
  - FOREIGN BODY REACTION [None]
  - GENERAL PHYSICAL HEALTH DETERIORATION [None]
  - PAIN IN JAW [None]
  - CYST [None]
  - BLOOD CALCIUM INCREASED [None]
  - FATIGUE [None]
  - RENAL FAILURE ACUTE [None]
  - LEFT VENTRICULAR DYSFUNCTION [None]
  - RENAL DISORDER [None]
  - BRONCHITIS [None]
  - ARTHRALGIA [None]
